FAERS Safety Report 6985794-3 (Version None)
Quarter: 2010Q3

REPORT INFORMATION
  Report Type: 
  Country: None (occurrence: None)
  Receive Date: 20100915
  Receipt Date: 20100915
  Transmission Date: 20110219
  Serious: Yes (Death, Hospitalization)
  Sender: FDA-Public Use
  Company Number: GB-WYE-G06623610

PATIENT
  Sex: Male

DRUGS (4)
  1. GEMTUZUMAB OZOGAMICIN [Suspect]
     Indication: ACUTE MYELOID LEUKAEMIA
     Dosage: 6 MG, DAY 1 OF COURSE 1
     Route: 042
     Dates: start: 20100121, end: 20100131
  2. ARA-C [Suspect]
     Indication: ACUTE MYELOID LEUKAEMIA
     Dosage: 200MG, DAILY ON COURSE 1
     Route: 042
     Dates: start: 20100121, end: 20100131
  3. CHLORPHENIRAMINE MALEATE [Concomitant]
     Dosage: 10 MG EVERY 1 TOT
     Route: 042
     Dates: start: 20100121
  4. DAUNORUBICIN HCL [Suspect]
     Indication: ACUTE MYELOID LEUKAEMIA
     Dosage: 100MG ON DAY 1, 3 AND 5 OF COURSE 1
     Route: 042
     Dates: start: 20100121, end: 20100131

REACTIONS (5)
  - DEVICE RELATED INFECTION [None]
  - DISEASE PROGRESSION [None]
  - MULTI-ORGAN FAILURE [None]
  - SEPSIS [None]
  - STAPHYLOCOCCAL INFECTION [None]
